FAERS Safety Report 24055921 (Version 2)
Quarter: 2024Q3

REPORT INFORMATION
  Report Type: Report from Study
  Country: US (occurrence: US)
  Receive Date: 20240705
  Receipt Date: 20240717
  Transmission Date: 20241017
  Serious: Yes (Hospitalization)
  Sender: BAYER
  Company Number: US-BAYER-2024A096467

PATIENT
  Age: 55 Year
  Sex: Female
  Weight: 114.29 kg

DRUGS (17)
  1. ADEMPAS [Suspect]
     Active Substance: RIOCIGUAT
     Indication: Pulmonary arterial hypertension
     Dosage: 0.5 MG, TID
     Route: 048
     Dates: start: 20240612
  2. VELETRI [Suspect]
     Active Substance: EPOPROSTENOL
  3. STERILE WATER [Concomitant]
     Active Substance: WATER
  4. LEVOTHYROXINE SODIUM [Concomitant]
     Active Substance: LEVOTHYROXINE SODIUM
  5. SODIUM CHLORIDE [Concomitant]
     Active Substance: SODIUM CHLORIDE
  6. SODIUM CHLORIDE [Concomitant]
     Active Substance: SODIUM CHLORIDE
  7. LYRICA [Concomitant]
     Active Substance: PREGABALIN
  8. LINZESS [Concomitant]
     Active Substance: LINACLOTIDE
  9. POTASSIUM CHLORIDE [Concomitant]
     Active Substance: POTASSIUM CHLORIDE
  10. ATORVASTATIN CALCIUM [Concomitant]
     Active Substance: ATORVASTATIN CALCIUM
  11. ALBUTEROL SULFATE [Concomitant]
     Active Substance: ALBUTEROL SULFATE
  12. METOPROLOL SUCCINATE [Concomitant]
     Active Substance: METOPROLOL SUCCINATE
  13. VITAMIN D3 [Concomitant]
     Active Substance: CHOLECALCIFEROL
  14. BUMETANIDE [Concomitant]
     Active Substance: BUMETANIDE
  15. ASPIRIN [Concomitant]
     Active Substance: ASPIRIN
  16. OXYGEN [Concomitant]
     Active Substance: OXYGEN
  17. ZEGERID OTC [Concomitant]
     Active Substance: OMEPRAZOLE\SODIUM BICARBONATE

REACTIONS (2)
  - Oedema [None]
  - Pulmonary hypertension [None]

NARRATIVE: CASE EVENT DATE: 20240619
